FAERS Safety Report 10335065 (Version 1)
Quarter: 2014Q3

REPORT INFORMATION
  Report Type: Spontaneous
  Country: US (occurrence: US)
  Receive Date: 20140723
  Receipt Date: 20140723
  Transmission Date: 20150326
  Serious: No
  Sender: FDA-Public Use
  Company Number: US-UNITED THERAPEUTICS-UTC-047697

PATIENT
  Age: 71 Year
  Sex: Female
  Weight: 92.07 kg

DRUGS (2)
  1. TYVASO [Suspect]
     Active Substance: TREPROSTINIL
     Dosage: 18-72 MICROGRAMS
     Dates: start: 20140408
  2. LETAIRIS [Suspect]
     Active Substance: AMBRISENTAN
     Dates: start: 20140411

REACTIONS (1)
  - Malaise [Unknown]

NARRATIVE: CASE EVENT DATE: 20140411
